FAERS Safety Report 10314045 (Version 1)
Quarter: 2014Q3

REPORT INFORMATION
  Report Type: Spontaneous
  Country: US (occurrence: None)
  Receive Date: 20140717
  Receipt Date: 20140717
  Transmission Date: 20150326
  Serious: Yes (Life-Threatening, Disabling)
  Sender: FDA-Public Use
  Company Number: None

PATIENT
  Age: 47 Year
  Sex: Female
  Weight: 59.1 kg

DRUGS (1)
  1. CIPROFLOXACIN HCL 500MG [Suspect]
     Active Substance: CIPROFLOXACIN HYDROCHLORIDE
     Indication: URINARY TRACT INFECTION
     Dosage: 5 DAYS; 9 PILLS
     Route: 048
     Dates: start: 20140620, end: 20140624

REACTIONS (13)
  - Hypoaesthesia [None]
  - Balance disorder [None]
  - Pain in extremity [None]
  - Fear [None]
  - Asthenia [None]
  - Tendonitis [None]
  - Arthralgia [None]
  - Pyrexia [None]
  - Joint swelling [None]
  - Hyperventilation [None]
  - Body temperature decreased [None]
  - Blood urine present [None]
  - Dyspnoea [None]

NARRATIVE: CASE EVENT DATE: 20140620
